FAERS Safety Report 21989082 (Version 1)
Quarter: 2023Q1

REPORT INFORMATION
  Report Type: Spontaneous
  Country: US (occurrence: US)
  Receive Date: 20230214
  Receipt Date: 20230214
  Transmission Date: 20230418
  Serious: Yes (Hospitalization, Other)
  Sender: FDA-Public Use
  Company Number: US-GLAXOSMITHKLINE-US2023019836

PATIENT

DRUGS (1)
  1. ZEJULA [Suspect]
     Active Substance: NIRAPARIB
     Indication: Malignant peritoneal neoplasm
     Dosage: 200 MG, QD
     Route: 048
     Dates: start: 20230113, end: 20230202

REACTIONS (8)
  - Hospitalisation [Unknown]
  - Renal impairment [Unknown]
  - Blood pressure increased [Unknown]
  - Dermal cyst [Unknown]
  - Blood creatinine increased [Unknown]
  - Nephrostomy [Unknown]
  - Stent placement [Unknown]
  - Kidney ablation [Unknown]
